FAERS Safety Report 21474856 (Version 1)
Quarter: 2022Q4

REPORT INFORMATION
  Report Type: Spontaneous
  Country: None (occurrence: US)
  Receive Date: 20221018
  Receipt Date: 20221018
  Transmission Date: 20230113
  Serious: No
  Sender: FDA-Public Use
  Company Number: US-Marksans Pharma Limited-2133954

PATIENT

DRUGS (1)
  1. MAXIMUM STRENGTH DAYTIME - NIGHTTIME COLD AND FLU COLD AND FLU [Suspect]
     Active Substance: ACETAMINOPHEN\DEXTROMETHORPHAN HYDROBROMIDE\DOXYLAMINE SUCCINATE\GUAIFENESIN\PHENYLEPHRINE HYDROCHLO
     Route: 048

REACTIONS (3)
  - Sleep paralysis [None]
  - Gait disturbance [None]
  - Somnolence [None]
